FAERS Safety Report 19800133 (Version 10)
Quarter: 2022Q2

REPORT INFORMATION
  Report Type: Report from Study
  Country: CO (occurrence: CO)
  Receive Date: 20210908
  Receipt Date: 20220629
  Transmission Date: 20220721
  Serious: Yes (Hospitalization, Other)
  Sender: FDA-Public Use
  Company Number: CO-ABBVIE-20K-036-3676458-00

PATIENT
  Age: 71 Year
  Sex: Female

DRUGS (7)
  1. HUMIRA [Suspect]
     Active Substance: ADALIMUMAB
     Indication: Rheumatoid arthritis
     Route: 058
     Dates: start: 20090930
  2. HUMIRA [Suspect]
     Active Substance: ADALIMUMAB
     Indication: Rheumatoid arthritis
     Route: 058
  3. HUMIRA [Suspect]
     Active Substance: ADALIMUMAB
     Route: 058
     Dates: start: 20220215, end: 20220601
  4. HUMIRA [Suspect]
     Active Substance: ADALIMUMAB
     Route: 058
     Dates: start: 20220601
  5. LYRICA [Suspect]
     Active Substance: PREGABALIN
     Indication: Pain
     Route: 065
  6. CALCIUM [Concomitant]
     Active Substance: CALCIUM
     Indication: Product used for unknown indication
  7. BIOCALCIUM [CALCIUM] [Concomitant]
     Indication: Product used for unknown indication

REACTIONS (50)
  - Hernia [Not Recovered/Not Resolved]
  - Limb injury [Not Recovered/Not Resolved]
  - Post procedural complication [Not Recovered/Not Resolved]
  - Memory impairment [Recovering/Resolving]
  - Depression [Recovering/Resolving]
  - Upper limb fracture [Not Recovered/Not Resolved]
  - Fall [Not Recovered/Not Resolved]
  - Fracture [Not Recovered/Not Resolved]
  - Walking aid user [Unknown]
  - Osteoarthritis [Not Recovered/Not Resolved]
  - Dysstasia [Unknown]
  - Gait disturbance [Not Recovered/Not Resolved]
  - Exercise tolerance decreased [Unknown]
  - Decreased appetite [Not Recovered/Not Resolved]
  - Mobility decreased [Not Recovered/Not Resolved]
  - Joint range of motion decreased [Not Recovered/Not Resolved]
  - Weight decreased [Not Recovered/Not Resolved]
  - Hypokinesia [Not Recovered/Not Resolved]
  - Dizziness [Not Recovered/Not Resolved]
  - Weight decreased [Not Recovered/Not Resolved]
  - Underweight [Not Recovered/Not Resolved]
  - Scoliosis [Recovering/Resolving]
  - Somnolence [Not Recovered/Not Resolved]
  - Procedural pain [Unknown]
  - Post procedural discharge [Unknown]
  - Gait disturbance [Not Recovered/Not Resolved]
  - Malnutrition [Not Recovered/Not Resolved]
  - Stress [Recovered/Resolved]
  - Depression [Recovered/Resolved]
  - Skin burning sensation [Not Recovered/Not Resolved]
  - Inflammation [Recovered/Resolved]
  - Insomnia [Not Recovered/Not Resolved]
  - Arthritis [Recovered/Resolved]
  - Peripheral swelling [Not Recovered/Not Resolved]
  - Peripheral swelling [Recovered/Resolved]
  - Pain [Not Recovered/Not Resolved]
  - Vomiting [Not Recovered/Not Resolved]
  - Arthralgia [Not Recovered/Not Resolved]
  - Arthralgia [Not Recovered/Not Resolved]
  - Back pain [Not Recovered/Not Resolved]
  - Bone pain [Not Recovered/Not Resolved]
  - Hypersensitivity [Not Recovered/Not Resolved]
  - Arthralgia [Not Recovered/Not Resolved]
  - Pain in extremity [Not Recovered/Not Resolved]
  - Vomiting [Not Recovered/Not Resolved]
  - Discomfort [Not Recovered/Not Resolved]
  - Pain [Not Recovered/Not Resolved]
  - Rheumatoid arthritis [Not Recovered/Not Resolved]
  - Postoperative wound infection [Not Recovered/Not Resolved]
  - Spinal pain [Not Recovered/Not Resolved]

NARRATIVE: CASE EVENT DATE: 20201101
